FAERS Safety Report 4727353-9 (Version None)
Quarter: 2005Q3

REPORT INFORMATION
  Report Type: 
  Country: None (occurrence: None)
  Receive Date: 20050727
  Receipt Date: 20050727
  Transmission Date: 20060218
  Serious: Yes (Hospitalization)
  Sender: FDA-Public Use
  Company Number: None

PATIENT
  Age: 75 Year
  Sex: Female

DRUGS (13)
  1. TEQUIN [Suspect]
     Indication: BLEPHAROPLASTY
     Dosage: 400MG QD PO X 7 DAYS
     Route: 048
     Dates: start: 20050103, end: 20050108
  2. TEQUIN [Suspect]
     Indication: PROPHYLAXIS
     Dosage: 400MG QD PO X 7 DAYS
     Route: 048
     Dates: start: 20050103, end: 20050108
  3. PERCOCET [Concomitant]
  4. ILOTYCIN [Concomitant]
  5. MICRONASE [Concomitant]
  6. GLYNASE [Concomitant]
  7. ZOCOR [Concomitant]
  8. HYDROCHLOROTHIAZIDE [Concomitant]
  9. ZESTRIL [Concomitant]
  10. NORVASC [Concomitant]
  11. ATENOLOL [Concomitant]
  12. ASPIRIN [Concomitant]
  13. PREVACID [Concomitant]

REACTIONS (1)
  - HYPERGLYCAEMIA [None]
